FAERS Safety Report 7764380-1 (Version None)
Quarter: 2011Q3

REPORT INFORMATION
  Report Type: 
  Country: None (occurrence: None)
  Receive Date: 20110921
  Receipt Date: 20110912
  Transmission Date: 20111222
  Serious: Yes (Hospitalization)
  Sender: FDA-Public Use
  Company Number: US-PERRIGO-11US007551

PATIENT
  Age: 22 Year
  Sex: Female

DRUGS (2)
  1. ULTRAVIOLET RADIATION [Suspect]
     Indication: RASH
     Dosage: 8 MINUTES OF EXPOSURE
     Route: 003
  2. IBUPROFEN [Suspect]
     Indication: MENSTRUAL DISCOMFORT
     Dosage: 200MG
     Route: 048

REACTIONS (5)
  - LIP SWELLING [None]
  - TOXIC EPIDERMAL NECROLYSIS [None]
  - PHOTOPHOBIA [None]
  - ADVERSE DRUG REACTION [None]
  - RASH MACULO-PAPULAR [None]
